FAERS Safety Report 9422484 (Version 1)
Quarter: 2013Q3

REPORT INFORMATION
  Report Type: Spontaneous
  Country: US (occurrence: None)
  Receive Date: 20130725
  Receipt Date: 20130725
  Transmission Date: 20140515
  Serious: Yes (Hospitalization, Disabling, Other)
  Sender: FDA-Public Use
  Company Number: None

PATIENT
  Age: 49 Year
  Sex: Male
  Weight: 90.72 kg

DRUGS (5)
  1. REMICADE [Suspect]
     Indication: RHEUMATOID ARTHRITIS
     Dosage: 1 INJECT. EVERY SIX WEEKS?EVERY SIX WEEKS?INJECTION
     Dates: start: 20120301, end: 20120401
  2. PIOGLITAZONE [Concomitant]
  3. LOPRESSOR [Concomitant]
  4. BAYER ASPIRIN [Concomitant]
  5. ALEVE [Concomitant]

REACTIONS (7)
  - Rash [None]
  - Pruritus [None]
  - Haemorrhage [None]
  - Erythema [None]
  - Renal disorder [None]
  - Flushing [None]
  - Chromaturia [None]
